FAERS Safety Report 11542409 (Version 2)
Quarter: 2015Q4

REPORT INFORMATION
  Report Type: Spontaneous
  Country: US (occurrence: US)
  Receive Date: 20150923
  Receipt Date: 20151009
  Transmission Date: 20160304
  Serious: No
  Sender: FDA-Public Use
  Company Number: US-TEVA-595409ACC

PATIENT
  Sex: Female

DRUGS (2)
  1. PLAN B ONE-STEP [Suspect]
     Active Substance: LEVONORGESTREL
     Indication: POST COITAL CONTRACEPTION
     Dates: start: 20150911, end: 20150911
  2. COPPER IUD [Concomitant]
     Active Substance: COPPER\INTRAUTERINE DEVICE
     Indication: CONTRACEPTION

REACTIONS (4)
  - Menstruation irregular [Not Recovered/Not Resolved]
  - Dysmenorrhoea [Unknown]
  - Nausea [Unknown]
  - Pyrexia [Unknown]
